FAERS Safety Report 22705662 (Version 2)
Quarter: 2024Q3

REPORT INFORMATION
  Report Type: Spontaneous
  Country: US (occurrence: US)
  Receive Date: 20230714
  Receipt Date: 20240925
  Transmission Date: 20241017
  Serious: Yes (Other)
  Sender: ENDO
  Company Number: ENDB23-02632

PATIENT
  Sex: Female

DRUGS (2)
  1. XIAFLEX [Suspect]
     Active Substance: COLLAGENASE CLOSTRIDIUM HISTOLYTICUM
     Indication: Dupuytren^s contracture
     Dosage: UNK UNKNOWN, UNKNOWN (SEVERAL INJECTIONS ON THE RING FINGER OF THE RIGHT HAND; PROBABLY 2)
     Route: 051
     Dates: start: 2023
  2. XIAFLEX [Suspect]
     Active Substance: COLLAGENASE CLOSTRIDIUM HISTOLYTICUM
     Dosage: UNK UNKNOWN, UNKNOWN (ONE-TWO INJECTIONS LEFT HAND, RING FINGER)
     Route: 051
     Dates: start: 2023

REACTIONS (7)
  - Fall [Recovered/Resolved]
  - Lower limb fracture [Recovered/Resolved]
  - Limb operation [Recovered/Resolved]
  - Dupuytren^s contracture [Not Recovered/Not Resolved]
  - Disease recurrence [Not Recovered/Not Resolved]
  - Joint injury [Recovering/Resolving]
  - Drug ineffective [Not Recovered/Not Resolved]

NARRATIVE: CASE EVENT DATE: 20230101
